FAERS Safety Report 8336995-3 (Version None)
Quarter: 2012Q2

REPORT INFORMATION
  Report Type: 
  Country: None (occurrence: None)
  Receive Date: 20120504
  Receipt Date: 20120423
  Transmission Date: 20120825
  Serious: Yes (Hospitalization)
  Sender: FDA-Public Use
  Company Number: NL-MEDIMMUNE-MEDI-0013858

PATIENT
  Sex: Male
  Weight: 6.66 kg

DRUGS (3)
  1. SYNAGIS [Suspect]
     Route: 030
     Dates: start: 20111007, end: 20111104
  2. MONTELUKAST SODIUM [Concomitant]
  3. SYNAGIS [Suspect]
     Indication: PREMATURE BABY
     Route: 030
     Dates: start: 20110908, end: 20110908

REACTIONS (7)
  - RESPIRATION ABNORMAL [None]
  - UPPER RESPIRATORY TRACT INFECTION [None]
  - RHINORRHOEA [None]
  - PYREXIA [None]
  - CHEST DISCOMFORT [None]
  - DYSPNOEA [None]
  - COUGH [None]
